FAERS Safety Report 14140122 (Version 1)
Quarter: 2017Q4

REPORT INFORMATION
  Report Type: Spontaneous
  Country: DE (occurrence: DE)
  Receive Date: 20171030
  Receipt Date: 20171030
  Transmission Date: 20180321
  Serious: No
  Sender: FDA-Public Use
  Company Number: DE-LUPIN PHARMACEUTICALS INC.-2016-04458

PATIENT
  Sex: Female

DRUGS (1)
  1. MUNALEA 20 0,02 MG/0,15 MG FILMTABLETTEN [Suspect]
     Active Substance: DESOGESTREL\ETHINYL ESTRADIOL
     Indication: CONTRACEPTION
     Dosage: UNK UNK,UNK,
     Route: 048

REACTIONS (3)
  - No adverse event [Unknown]
  - Product physical issue [Unknown]
  - Poor quality drug administered [Unknown]
